FAERS Safety Report 13994881 (Version 1)
Quarter: 2017Q3

REPORT INFORMATION
  Report Type: Report from Study
  Country: CN (occurrence: CN)
  Receive Date: 20170921
  Receipt Date: 20170921
  Transmission Date: 20171128
  Serious: Yes (Other)
  Sender: FDA-Public Use
  Company Number: CN-ROCHE-1989807

PATIENT

DRUGS (2)
  1. CAPECITABINE. [Suspect]
     Active Substance: CAPECITABINE
     Indication: GASTRIC CANCER
     Route: 065
  2. OXALIPLATIN. [Suspect]
     Active Substance: OXALIPLATIN
     Indication: GASTRIC CANCER
     Route: 065

REACTIONS (6)
  - Leukopenia [Unknown]
  - Nausea [Unknown]
  - Thrombocytopenia [Unknown]
  - Vomiting [Unknown]
  - Hepatic failure [Unknown]
  - Diarrhoea [Unknown]
